FAERS Safety Report 4306612-8 (Version None)
Quarter: 2004Q1

REPORT INFORMATION
  Report Type: 
  Country: None (occurrence: None)
  Receive Date: 20040225
  Receipt Date: 20030929
  Transmission Date: 20041129
  Serious: No
  Sender: FDA-Public Use
  Company Number: US-BRISTOL-MYERS SQUIBB COMPANY-12421582

PATIENT
  Age: 83 Year
  Sex: Female
  Weight: 68 kg

DRUGS (8)
  1. EXCEDRIN ES TABS [Suspect]
     Indication: HEADACHE
     Dosage: THERAPY START DATE: ^APPROXIMATELY ONE MONTH AGO;^ 29-AUG-03 ALSO REPORTED.
     Route: 048
     Dates: start: 20030827, end: 20030927
  2. EXCEDRIN ES TABS [Suspect]
     Indication: MIGRAINE
     Dosage: THERAPY START DATE: ^APPROXIMATELY ONE MONTH AGO;^ 29-AUG-03 ALSO REPORTED.
     Route: 048
     Dates: start: 20030827, end: 20030927
  3. FOSAMAX [Concomitant]
     Indication: OSTEOPOROSIS
  4. MOBIC [Concomitant]
     Indication: ARTHRITIS
  5. ALLEGRA [Concomitant]
     Indication: MULTIPLE ALLERGIES
  6. ASPIRIN [Concomitant]
     Indication: PHLEBITIS
  7. CALCIUM [Concomitant]
  8. MULTIVITAMIN [Concomitant]

REACTIONS (2)
  - ORAL DISCOMFORT [None]
  - TONGUE DISORDER [None]
